FAERS Safety Report 5309250-3 (Version None)
Quarter: 2007Q1

REPORT INFORMATION
  Report Type: 
  Country: None (occurrence: None)
  Receive Date: 20070201
  Receipt Date: 20061229
  Transmission Date: 20070707
  Serious: No
  Sender: FDA-Public Use
  Company Number: 2006PV027531

PATIENT
  Age: 48 Year
  Sex: Male
  Weight: 120.2032 kg

DRUGS (5)
  1. BYETTA [Suspect]
     Indication: DIABETES MELLITUS NON-INSULIN-DEPENDENT
     Dosage: SEE IMAGE
     Route: 058
     Dates: start: 20050101
  2. PHENYLALANINE AND TYRAZINE COMPOUND [Suspect]
     Indication: ASTHENIA
     Dosage: QD
     Dates: start: 20061201
  3. GLUCOPHAGE [Concomitant]
  4. ACTOS [Concomitant]
  5. LISINOPRIL [Concomitant]

REACTIONS (4)
  - ANAPHYLACTIC REACTION [None]
  - FALL [None]
  - UPPER LIMB FRACTURE [None]
  - WRIST FRACTURE [None]
